FAERS Safety Report 24809767 (Version 1)
Quarter: 2025Q1

REPORT INFORMATION
  Report Type: Spontaneous
  Country: US (occurrence: None)
  Receive Date: 20250103
  Receipt Date: 20250103
  Transmission Date: 20250409
  Serious: Yes (Hospitalization)
  Sender: FDA-CTU
  Company Number: None

PATIENT
  Age: 49 Year
  Sex: Female

DRUGS (8)
  1. TADALAFIL [Suspect]
     Active Substance: TADALAFIL
     Indication: Pulmonary arterial hypertension
     Dosage: FREQUENCY : DAILY;?
     Route: 048
     Dates: start: 202104
  2. REMODULIN [Suspect]
     Active Substance: TREPROSTINIL
  3. STERILE DILUENT FOR REMODULIN [Concomitant]
     Active Substance: WATER
  4. DEVICE [Concomitant]
     Active Substance: DEVICE
  5. UPTRAVI (MNTH 2 TITR) [Concomitant]
  6. WINREVAIR [Concomitant]
     Active Substance: SOTATERCEPT-CSRK
  7. LETAIRIS [Concomitant]
     Active Substance: AMBRISENTAN
  8. REMODULIN [Concomitant]
     Active Substance: TREPROSTINIL

REACTIONS (2)
  - Complication associated with device [None]
  - Device dislocation [None]

NARRATIVE: CASE EVENT DATE: 20250102
